FAERS Safety Report 9386226 (Version 1)
Quarter: 2013Q3

REPORT INFORMATION
  Report Type: Report from Study
  Country: FR (occurrence: FR)
  Receive Date: 20130708
  Receipt Date: 20130708
  Transmission Date: 20140515
  Serious: Yes (Other)
  Sender: FDA-Public Use
  Company Number: FR-AMGEN-FRACT2013028863

PATIENT
  Age: 54 Year
  Sex: Female

DRUGS (3)
  1. ETANERCEPT [Suspect]
     Indication: RHEUMATOID ARTHRITIS
     Dosage: 50 MG, QWK
     Route: 065
     Dates: start: 200908, end: 201001
  2. LEFLUNOMIDE [Concomitant]
     Dosage: 20 MG, 1X/DAY
     Dates: start: 200705, end: 200811
  3. LEFLUNOMIDE [Concomitant]
     Dosage: 20 MG, 1X/DAY
     Dates: start: 200902, end: 201104

REACTIONS (1)
  - Acute coronary syndrome [Recovered/Resolved]
